FAERS Safety Report 14955932 (Version 1)
Quarter: 2018Q2

REPORT INFORMATION
  Report Type: Spontaneous
  Country: US (occurrence: US)
  Receive Date: 20180531
  Receipt Date: 20180531
  Transmission Date: 20180711
  Serious: Yes (Hospitalization)
  Sender: FDA-Public Use
  Company Number: US-AUROBINDO-AUR-APL-2018-027662

PATIENT
  Age: 14 Year
  Sex: Male

DRUGS (2)
  1. CITALOPRAM [Concomitant]
     Active Substance: CITALOPRAM HYDROBROMIDE
     Indication: PRODUCT USED FOR UNKNOWN INDICATION
     Dosage: UNK
     Route: 065
  2. ARIPIPRAZOLE TABLETS 5MG [Suspect]
     Active Substance: ARIPIPRAZOLE
     Indication: ANXIETY
     Dosage: 20 TABLETS OF 5 MG
     Route: 065

REACTIONS (13)
  - Sinus tachycardia [Unknown]
  - Hypocalcaemia [Unknown]
  - Electrocardiogram QRS complex prolonged [Unknown]
  - Intentional overdose [Unknown]
  - Hypokalaemia [Unknown]
  - Muscle contractions involuntary [None]
  - Blood pressure diastolic increased [None]
  - Bundle branch block left [Unknown]
  - Somnolence [Recovering/Resolving]
  - Electrocardiogram abnormal [Unknown]
  - Dystonia [Unknown]
  - Hypomagnesaemia [Unknown]
  - Oxygen saturation decreased [None]
